FAERS Safety Report 15986528 (Version 2)
Quarter: 2019Q2

REPORT INFORMATION
  Report Type: Report from Study
  Country: ZA (occurrence: ZA)
  Receive Date: 20190220
  Receipt Date: 20190417
  Transmission Date: 20190711
  Serious: Yes (Life-Threatening, Hospitalization)
  Sender: FDA-Public Use
  Company Number: ZA-SA-2019SA044687

PATIENT
  Age: 36 Year
  Sex: Female

DRUGS (7)
  1. FERROUS SULPHATE [FERROUS SULFATE] [Concomitant]
     Active Substance: FERROUS SULFATE
     Dosage: 1 MG, QD (BEFORE BREAKFAST)
     Dates: start: 20181009
  2. OPTISULIN (INSULIN GLARGINE) [Suspect]
     Active Substance: INSULIN GLARGINE
     Dosage: DECREASED INSULIN BY 3 UNITS
  3. DIAGLUCIDE [Concomitant]
     Active Substance: GLICLAZIDE
     Dosage: 120 MG, QD (BEFORE BREAKFAST)
     Dates: start: 20181010
  4. TREPILINE [AMITRIPTYLINE HYDROCHLORIDE] [Concomitant]
     Active Substance: AMITRIPTYLINE HYDROCHLORIDE
     Dosage: 10 MG, AFTER SLEEP
     Dates: start: 20190201
  5. URBANOL [Concomitant]
     Active Substance: CLOBAZAM
     Dosage: 10 MG
     Dates: start: 20190201
  6. GLUCOPHAGE [Concomitant]
     Active Substance: METFORMIN HYDROCHLORIDE
     Dosage: 1000 MG, BID (BEFORE BREAKFAST, BEFORE SUPPER)
     Dates: start: 20181009
  7. OPTISULIN (INSULIN GLARGINE) [Suspect]
     Active Substance: INSULIN GLARGINE
     Dosage: 52 U, HS
     Dates: start: 20181009

REACTIONS (5)
  - Depression [Not Recovered/Not Resolved]
  - Hypoglycaemia [Not Recovered/Not Resolved]
  - Glycosylated haemoglobin increased [Unknown]
  - Anxiety [Not Recovered/Not Resolved]
  - Hypoglycaemia [Recovered/Resolved]

NARRATIVE: CASE EVENT DATE: 20190116
